FAERS Safety Report 18962705 (Version 1)
Quarter: 2021Q1

REPORT INFORMATION
  Report Type: Spontaneous
  Country: US (occurrence: US)
  Receive Date: 20210303
  Receipt Date: 20210303
  Transmission Date: 20210420
  Serious: No
  Sender: FDA-Public Use
  Company Number: None

PATIENT
  Age: 59 Year
  Sex: Male
  Weight: 109.8 kg

DRUGS (1)
  1. ENOXAPARIN INJECTION [Suspect]
     Active Substance: ENOXAPARIN
     Indication: AORTIC VALVE REPLACEMENT
     Route: 058
     Dates: start: 20210104, end: 20210111

REACTIONS (2)
  - Recalled product administered [None]
  - Haemorrhage [None]

NARRATIVE: CASE EVENT DATE: 20210111
